FAERS Safety Report 23951607 (Version 7)
Quarter: 2024Q3

REPORT INFORMATION
  Report Type: Spontaneous
  Country: JP (occurrence: JP)
  Receive Date: 20240607
  Receipt Date: 20240709
  Transmission Date: 20241017
  Serious: Yes (Hospitalization, Other)
  Sender: HRA PHARMA
  Company Number: JP-ORG100014127-2024000155

PATIENT
  Age: 37 Year
  Sex: Female

DRUGS (4)
  1. METYRAPONE [Suspect]
     Active Substance: METYRAPONE
     Indication: Pituitary-dependent Cushing^s syndrome
     Dates: start: 20230610, end: 20230715
  2. OSILODROSTAT [Concomitant]
     Active Substance: OSILODROSTAT
     Indication: Pituitary-dependent Cushing^s syndrome
  3. HYDROCORTISONE [Concomitant]
     Active Substance: HYDROCORTISONE\HYDROCORTISONE ACETATE
     Indication: Pituitary-dependent Cushing^s syndrome
  4. PASIREOTIDE [Concomitant]
     Active Substance: PASIREOTIDE
     Indication: Pituitary-dependent Cushing^s syndrome

REACTIONS (4)
  - Premature delivery [Recovered/Resolved]
  - Premature rupture of membranes [Recovered/Resolved]
  - Nausea [Recovered/Resolved]
  - Exposure during pregnancy [Recovered/Resolved]

NARRATIVE: CASE EVENT DATE: 20230715
